FAERS Safety Report 5809932-0 (Version None)
Quarter: 2008Q3

REPORT INFORMATION
  Report Type: 
  Country: None (occurrence: None)
  Receive Date: 20080715
  Receipt Date: 20080709
  Transmission Date: 20090109
  Serious: Yes (Hospitalization)
  Sender: FDA-Public Use
  Company Number: NL-WYE-G01815908

PATIENT
  Sex: Male

DRUGS (3)
  1. EFFEXOR XR [Suspect]
  2. GABAPENTIN [Interacting]
  3. ACENOCOUMAROL [Interacting]

REACTIONS (4)
  - ARTERIAL OCCLUSIVE DISEASE [None]
  - DRUG INTERACTION [None]
  - LIP SWELLING [None]
  - OEDEMA MOUTH [None]
